FAERS Safety Report 19737507 (Version 18)
Quarter: 2023Q1

REPORT INFORMATION
  Report Type: Report from Study
  Country: CO (occurrence: CO)
  Receive Date: 20210824
  Receipt Date: 20230216
  Transmission Date: 20230417
  Serious: Yes (Life-Threatening, Hospitalization, Other)
  Sender: FDA-Public Use
  Company Number: PHHY2019CO206456

PATIENT
  Sex: Male
  Weight: 55.5 kg

DRUGS (6)
  1. TASIGNA [Suspect]
     Active Substance: NILOTINIB
     Indication: Chronic myeloid leukaemia
     Dosage: 300 MG, Q12H
     Route: 048
     Dates: start: 20180403
  2. TASIGNA [Suspect]
     Active Substance: NILOTINIB
     Dosage: 300 MG, Q12H
     Route: 048
     Dates: start: 20180413
  3. TASIGNA [Suspect]
     Active Substance: NILOTINIB
     Dosage: UNK
     Route: 048
  4. TASIGNA [Suspect]
     Active Substance: NILOTINIB
     Dosage: 150 MG, Q12H
     Route: 048
     Dates: start: 20180403
  5. TASIGNA [Suspect]
     Active Substance: NILOTINIB
     Dosage: 150 MG, Q12H 1 TABLET OF 150 MG AND ANOTHER ONE IN THE AFTERNOON OF 150 MG (300 MG DAILY))
     Route: 048
  6. TASIGNA [Suspect]
     Active Substance: NILOTINIB
     Dosage: 300 MG, Q12H
     Route: 048

REACTIONS (22)
  - Platelet count decreased [Unknown]
  - Fear of death [Unknown]
  - Splenomegaly [Recovering/Resolving]
  - Fear [Unknown]
  - White blood cell count increased [Unknown]
  - Haemoglobin decreased [Unknown]
  - Haemorrhage [Unknown]
  - White blood cell count decreased [Unknown]
  - Abdominal discomfort [Unknown]
  - Sleep disorder [Unknown]
  - Cardiac disorder [Unknown]
  - Gait disturbance [Unknown]
  - Pigmentation disorder [Unknown]
  - Platelet disorder [Unknown]
  - Platelet count increased [Unknown]
  - Contusion [Unknown]
  - Petechiae [Unknown]
  - Malaise [Unknown]
  - Peripheral swelling [Unknown]
  - Pain in extremity [Unknown]
  - Epistaxis [Unknown]
  - Incorrect dose administered [Unknown]
